FAERS Safety Report 18244674 (Version 1)
Quarter: 2020Q3

REPORT INFORMATION
  Report Type: Spontaneous
  Country: GB (occurrence: GB)
  Receive Date: 20200908
  Receipt Date: 20200908
  Transmission Date: 20201103
  Serious: Yes (Hospitalization, Disabling, Other)
  Sender: FDA-Public Use
  Company Number: GB-JNJFOC-20200838889

PATIENT
  Age: 40 Year
  Sex: Male
  Weight: 77.47 kg

DRUGS (6)
  1. RISPERIDONE. [Suspect]
     Active Substance: RISPERIDONE
     Indication: PSYCHOTIC DISORDER
     Dosage: 0.5
     Route: 048
     Dates: start: 2013, end: 202002
  2. CANDESARTAN. [Concomitant]
     Active Substance: CANDESARTAN
  3. VITAMIN D [Concomitant]
     Active Substance: VITAMIN D NOS
  4. OMEGA?3 FISH OIL [Concomitant]
     Active Substance: FISH OIL\OMEGA-3 FATTY ACIDS
  5. LERCANIDIPINE [Concomitant]
     Active Substance: LERCANIDIPINE
  6. PROMAZINE HYDROCHLORIDE [Concomitant]
     Active Substance: PROMAZINE HYDROCHLORIDE

REACTIONS (5)
  - Emotional poverty [Unknown]
  - Disturbance in sexual arousal [Recovering/Resolving]
  - Libido increased [Recovering/Resolving]
  - Psychotic disorder [Recovering/Resolving]
  - Hallucinations, mixed [Unknown]

NARRATIVE: CASE EVENT DATE: 202005
